FAERS Safety Report 7634176-X (Version None)
Quarter: 2011Q3

REPORT INFORMATION
  Report Type: 
  Country: None (occurrence: None)
  Receive Date: 20110725
  Receipt Date: 20110720
  Transmission Date: 20111222
  Serious: Yes (Life-Threatening)
  Sender: FDA-Public Use
  Company Number: CN-ASTRAZENECA-2011SE42454

PATIENT
  Age: 32 Year
  Sex: Female

DRUGS (1)
  1. LIDOCAINE [Suspect]
     Indication: NERVE BLOCK
     Route: 042

REACTIONS (7)
  - LOSS OF CONSCIOUSNESS [None]
  - STRABISMUS [None]
  - PULSE PRESSURE DECREASED [None]
  - RESPIRATORY RATE DECREASED [None]
  - PALLOR [None]
  - SLOW RESPONSE TO STIMULI [None]
  - HEART RATE DECREASED [None]
